FAERS Safety Report 14424931 (Version 2)
Quarter: 2018Q2

REPORT INFORMATION
  Report Type: Report from Study
  Country: US (occurrence: US)
  Receive Date: 20180123
  Receipt Date: 20180409
  Transmission Date: 20180711
  Serious: Yes (Hospitalization, Other)
  Sender: FDA-Public Use
  Company Number: US-SA-2017SA182636

PATIENT
  Age: 54 Year
  Sex: Female

DRUGS (5)
  1. LEMTRADA [Suspect]
     Active Substance: ALEMTUZUMAB
     Indication: MULTIPLE SCLEROSIS
     Route: 041
     Dates: start: 20150105, end: 20150109
  2. ZOLOFT [Concomitant]
     Active Substance: SERTRALINE HYDROCHLORIDE
     Indication: DEPRESSION
     Route: 065
  3. AMPYRA [Concomitant]
     Active Substance: DALFAMPRIDINE
     Indication: GAIT DISTURBANCE
     Route: 065
  4. RESTORIL [Concomitant]
     Active Substance: TEMAZEPAM
     Indication: INSOMNIA
     Route: 065
  5. LEMTRADA [Suspect]
     Active Substance: ALEMTUZUMAB
     Indication: MULTIPLE SCLEROSIS
     Route: 041
     Dates: start: 20160111, end: 20160113

REACTIONS (23)
  - Flushing [Not Recovered/Not Resolved]
  - Diplopia [Not Recovered/Not Resolved]
  - Eye swelling [Not Recovered/Not Resolved]
  - Oedema peripheral [Recovered/Resolved]
  - Tri-iodothyronine increased [Unknown]
  - Asthma [Recovering/Resolving]
  - Dizziness postural [Recovered/Resolved]
  - Blood thyroid stimulating hormone decreased [Unknown]
  - Peripheral swelling [Not Recovered/Not Resolved]
  - Pneumonia [Unknown]
  - Diarrhoea [Recovering/Resolving]
  - Endocrine ophthalmopathy [Not Recovered/Not Resolved]
  - Syncope [Recovered/Resolved]
  - Thyroxine increased [Unknown]
  - Heart rate increased [Recovering/Resolving]
  - Blood pressure decreased [Recovered/Resolved]
  - Wheezing [Not Recovered/Not Resolved]
  - Dyspnoea [Recovered/Resolved]
  - Hyperthyroidism [Not Recovered/Not Resolved]
  - Fatigue [Not Recovered/Not Resolved]
  - Tachycardia [Recovered/Resolved]
  - Memory impairment [Unknown]
  - Nausea [Recovered/Resolved]

NARRATIVE: CASE EVENT DATE: 2017
